FAERS Safety Report 6464542-X (Version None)
Quarter: 2009Q4

REPORT INFORMATION
  Report Type: 
  Country: None (occurrence: None)
  Receive Date: 20091201
  Receipt Date: 20091130
  Transmission Date: 20100525
  Serious: Yes (Other)
  Sender: FDA-Public Use
  Company Number: US-PFIZER INC-2009201029

PATIENT
  Sex: Female
  Weight: 56.689 kg

DRUGS (3)
  1. LIPITOR [Suspect]
     Indication: BLOOD CHOLESTEROL
     Dosage: 10 MG, 1X/DAY
     Dates: start: 20080101, end: 20090414
  2. SYNTHROID [Concomitant]
     Dosage: UNK
  3. PREVACID [Concomitant]
     Dosage: UNK

REACTIONS (5)
  - BIOPSY SITE UNSPECIFIED ABNORMAL [None]
  - PRURITUS [None]
  - PRURITUS GENERALISED [None]
  - RASH MACULAR [None]
  - URTICARIA [None]
